FAERS Safety Report 19902561 (Version 1)
Quarter: 2021Q3

REPORT INFORMATION
  Report Type: Spontaneous
  Country: US (occurrence: US)
  Receive Date: 20210930
  Receipt Date: 20210930
  Transmission Date: 20211014
  Serious: No
  Sender: FDA-Public Use
  Company Number: US-CELGENEUS-USA-20210906428

PATIENT
  Sex: Female

DRUGS (3)
  1. IDHIFA [Suspect]
     Active Substance: ENASIDENIB MESYLATE
     Indication: 5Q MINUS SYNDROME
     Dosage: 100 MILLIGRAM
     Route: 048
     Dates: start: 20210326
  2. IDHIFA [Suspect]
     Active Substance: ENASIDENIB MESYLATE
     Indication: ESSENTIAL THROMBOCYTHAEMIA
  3. IDHIFA [Suspect]
     Active Substance: ENASIDENIB MESYLATE
     Indication: MYELOPROLIFERATIVE NEOPLASM

REACTIONS (2)
  - Platelet count decreased [Unknown]
  - Full blood count decreased [Unknown]
